FAERS Safety Report 4863551-1 (Version None)
Quarter: 2005Q4

REPORT INFORMATION
  Report Type: 
  Country: None (occurrence: None)
  Receive Date: 20051222
  Receipt Date: 20050421
  Transmission Date: 20060501
  Serious: No
  Sender: FDA-Public Use
  Company Number: US-GLAXOSMITHKLINE-A0555205A

PATIENT
  Age: 60 Year
  Sex: Female

DRUGS (7)
  1. FLONASE [Suspect]
     Dosage: 2SPR PER DAY
     Route: 045
  2. ALLEGRA [Concomitant]
  3. SINGULAIR [Concomitant]
  4. DETROL LA [Concomitant]
  5. ASACOL [Concomitant]
  6. VITAMINS [Concomitant]
  7. NEXIUM [Concomitant]

REACTIONS (2)
  - DRY MOUTH [None]
  - ORAL DISCOMFORT [None]
